FAERS Safety Report 21330775 (Version 1)
Quarter: 2022Q3

REPORT INFORMATION
  Report Type: Spontaneous
  Country: CA (occurrence: CA)
  Receive Date: 20220914
  Receipt Date: 20220914
  Transmission Date: 20221027
  Serious: Yes (Other)
  Sender: FDA-Public Use
  Company Number: CA-STRIDES ARCOLAB LIMITED-2022SP011530

PATIENT
  Age: 57 Year
  Sex: Female

DRUGS (7)
  1. VANCOMYCIN [Suspect]
     Active Substance: VANCOMYCIN
     Indication: Hernia repair
     Dosage: 4 GRAM,DOSAGE: ANTIBIOTIC BEAD WAS PREPARED USING VANCOMYCIN 4GM AND GENTAMICIN 480MG WITH A SMALL M
     Route: 065
  2. GENTAMICIN [Suspect]
     Active Substance: GENTAMICIN
     Indication: Hernia repair
     Dosage: 480 MILLIGRAM,DOSAGE: ANTIBIOTIC BEAD WAS PREPARED USING VANCOMYCIN 4GM AND GENTAMICIN 480MG WITH A
     Route: 065
  3. ACETAMINOPHEN AND CODEINE [Concomitant]
     Active Substance: ACETAMINOPHEN\CODEINE PHOSPHATE
     Indication: Product used for unknown indication
     Dosage: UNK
     Route: 065
  4. PANTOPRAZOLE [Concomitant]
     Active Substance: PANTOPRAZOLE
     Indication: Gastrooesophageal reflux disease
     Dosage: UNK
     Route: 065
  5. FUROSEMIDE [Concomitant]
     Active Substance: FUROSEMIDE
     Indication: Product used for unknown indication
     Dosage: UNK
     Route: 065
  6. LORAZEPAM [Concomitant]
     Active Substance: LORAZEPAM
     Indication: Obstructive sleep apnoea syndrome
     Dosage: UNK
     Route: 065
  7. CEFAZOLIN [Concomitant]
     Active Substance: CEFAZOLIN
     Indication: Prophylaxis
     Dosage: UNK
     Route: 065

REACTIONS (4)
  - Candida infection [Recovered/Resolved]
  - Abdominal wall abscess [Recovered/Resolved]
  - Medical device site infection [Recovered/Resolved]
  - Off label use [Unknown]
